FAERS Safety Report 16505816 (Version 5)
Quarter: 2019Q4

REPORT INFORMATION
  Report Type: Report from Study
  Country: US (occurrence: US)
  Receive Date: 20190701
  Receipt Date: 20191115
  Transmission Date: 20200122
  Serious: Yes (Death, Hospitalization)
  Sender: FDA-Public Use
  Company Number: US-EISAI MEDICAL RESEARCH-EC-2019-058065

PATIENT
  Age: 45 Year
  Sex: Female

DRUGS (5)
  1. LENVIMA [Suspect]
     Active Substance: LENVATINIB
     Route: 048
     Dates: start: 20190930, end: 20191022
  2. AMLODIPINE [Concomitant]
     Active Substance: AMLODIPINE BESYLATE
  3. LENVIMA [Suspect]
     Active Substance: LENVATINIB
     Indication: SALIVARY GLAND CANCER
     Route: 048
     Dates: start: 20190613, end: 20190620
  4. LENVIMA [Suspect]
     Active Substance: LENVATINIB
     Route: 048
     Dates: start: 201907, end: 201909
  5. PERCOCET [Suspect]
     Active Substance: ACETAMINOPHEN\OXYCODONE HYDROCHLORIDE
     Indication: BONE PAIN
     Dosage: DOSE AND FREQUENCY UNKNOWN
     Route: 065

REACTIONS (28)
  - Back pain [Not Recovered/Not Resolved]
  - Heart rate increased [Recovering/Resolving]
  - Vomiting [Not Recovered/Not Resolved]
  - Pain in extremity [Unknown]
  - Hyperglycaemia [Unknown]
  - Constipation [Not Recovered/Not Resolved]
  - Arthralgia [Unknown]
  - Bone disorder [Recovering/Resolving]
  - Spinal pain [Not Recovered/Not Resolved]
  - Death [Fatal]
  - Blood sodium decreased [Not Recovered/Not Resolved]
  - Nausea [Not Recovered/Not Resolved]
  - Appetite disorder [Recovered/Resolved]
  - Fatigue [Not Recovered/Not Resolved]
  - Weight decreased [Unknown]
  - Headache [Recovering/Resolving]
  - Hypertension [Recovering/Resolving]
  - Dehydration [Not Recovered/Not Resolved]
  - Blood magnesium decreased [Not Recovered/Not Resolved]
  - Mucous stools [Recovering/Resolving]
  - Flatulence [Recovering/Resolving]
  - Gastrooesophageal reflux disease [Not Recovered/Not Resolved]
  - Blood calcium increased [Recovering/Resolving]
  - Haemoglobin decreased [Not Recovered/Not Resolved]
  - Chest pain [Unknown]
  - Sinus tachycardia [Unknown]
  - Product use in unapproved indication [Not Recovered/Not Resolved]
  - Palpitations [Unknown]

NARRATIVE: CASE EVENT DATE: 2019
